FAERS Safety Report 15812751 (Version 3)
Quarter: 2023Q4

REPORT INFORMATION
  Report Type: Spontaneous
  Country: PT (occurrence: PT)
  Receive Date: 20190111
  Receipt Date: 20231026
  Transmission Date: 20240109
  Serious: Yes (Death, Other)
  Sender: FDA-Public Use
  Company Number: None

PATIENT
  Age: 79 Year
  Sex: Male
  Weight: 70 kg

DRUGS (8)
  1. PYRAZINAMIDE [Suspect]
     Active Substance: PYRAZINAMIDE
     Indication: Tuberculosis
     Dosage: 1000 MG DE 24/24H
     Route: 048
     Dates: start: 20181011, end: 20181205
  2. ETHAMBUTOL [Suspect]
     Active Substance: ETHAMBUTOL HYDROCHLORIDE
     Indication: Tuberculosis
     Dosage: 1200 MG DE 24/24H
     Route: 048
     Dates: start: 20181011, end: 20181205
  3. ISONIAZID [Suspect]
     Active Substance: ISONIAZID
     Indication: Tuberculosis
     Dosage: 300 MG DE 24/24H
     Route: 048
     Dates: start: 20181011, end: 20181207
  4. RIFAMPIN [Suspect]
     Active Substance: RIFAMPIN
     Indication: Tuberculosis
     Dosage: 600 MG
     Route: 048
     Dates: start: 20181011, end: 20181207
  5. PYRIDOXINE [Concomitant]
     Active Substance: PYRIDOXINE
     Indication: Product used for unknown indication
     Route: 065
  6. ENOXAPARIN SODIUM [Concomitant]
     Active Substance: ENOXAPARIN SODIUM
     Indication: Product used for unknown indication
     Route: 065
  7. OMEPRAZOLE [Concomitant]
     Active Substance: OMEPRAZOLE
     Indication: Product used for unknown indication
     Route: 065
  8. AMLODIPINE [Concomitant]
     Active Substance: AMLODIPINE BESYLATE
     Indication: Product used for unknown indication
     Route: 065

REACTIONS (11)
  - Purpura [Fatal]
  - Hepatotoxicity [Fatal]
  - Gamma-glutamyltransferase increased [Fatal]
  - Rash [Fatal]
  - Skin erosion [Fatal]
  - Blood alkaline phosphatase increased [Fatal]
  - Aspartate aminotransferase increased [Fatal]
  - Blood bilirubin increased [Fatal]
  - Alanine aminotransferase increased [Fatal]
  - Toxic skin eruption [Fatal]
  - Rash maculo-papular [Fatal]

NARRATIVE: CASE EVENT DATE: 20181105
